FAERS Safety Report 18564044 (Version 1)
Quarter: 2020Q4

REPORT INFORMATION
  Report Type: Spontaneous
  Country: US (occurrence: US)
  Receive Date: 20201130
  Receipt Date: 20201130
  Transmission Date: 20210114
  Serious: Yes (Death)
  Sender: FDA-Public Use
  Company Number: None

PATIENT
  Age: 34 Year
  Sex: Male

DRUGS (9)
  1. FENTANYL. [Concomitant]
     Active Substance: FENTANYL
  2. MORPHINE SUL [Concomitant]
     Active Substance: MORPHINE SULFATE
  3. MEKINIST [Suspect]
     Active Substance: TRAMETINIB DIMETHYL SULFOXIDE
     Indication: SMALL INTESTINE CARCINOMA
     Route: 048
     Dates: start: 20201006, end: 20201107
  4. HYDROMORPHON [Concomitant]
     Active Substance: HYDROMORPHONE
  5. DRONABINOL. [Concomitant]
     Active Substance: DRONABINOL
  6. NARCAN [Concomitant]
     Active Substance: NALOXONE HYDROCHLORIDE
  7. XELJANZ [Concomitant]
     Active Substance: TOFACITINIB CITRATE
     Dates: start: 20190830, end: 20201107
  8. TAFINLAR [Suspect]
     Active Substance: DABRAFENIB MESYLATE
     Indication: SMALL INTESTINE CARCINOMA
     Route: 048
     Dates: start: 20201006, end: 20201107
  9. PANTOPRAZOLE [Concomitant]
     Active Substance: PANTOPRAZOLE

REACTIONS (1)
  - Death [None]

NARRATIVE: CASE EVENT DATE: 20201107
